FAERS Safety Report 5254863-0 (Version None)
Quarter: 2007Q1

REPORT INFORMATION
  Report Type: 
  Country: None (occurrence: None)
  Receive Date: 20070305
  Receipt Date: 20070221
  Transmission Date: 20070707
  Serious: Yes (Hospitalization)
  Sender: FDA-Public Use
  Company Number: FR-BRISTOL-MYERS SQUIBB COMPANY-13689880

PATIENT
  Age: 92 Year
  Sex: Female
  Weight: 35 kg

DRUGS (7)
  1. APROVEL TABS [Suspect]
     Route: 048
     Dates: end: 20061031
  2. PRAXILENE [Suspect]
     Route: 048
     Dates: end: 20061031
  3. LORAZEPAM [Suspect]
     Route: 048
  4. DAFLON [Suspect]
     Route: 048
     Dates: end: 20061031
  5. TRANXENE [Suspect]
     Route: 048
     Dates: end: 20061103
  6. FORLAX [Suspect]
     Route: 048
  7. VASTAREL [Concomitant]
     Route: 048
     Dates: end: 20061031

REACTIONS (3)
  - CONFUSIONAL STATE [None]
  - FALL [None]
  - HYPONATRAEMIA [None]
